FAERS Safety Report 15118316 (Version 2)
Quarter: 2018Q3

REPORT INFORMATION
  Report Type: Spontaneous
  Country: US (occurrence: US)
  Receive Date: 20180708
  Receipt Date: 20180906
  Transmission Date: 20181010
  Serious: No
  Sender: FDA-Public Use
  Company Number: US-JNJFOC-20180630832

PATIENT
  Age: 20 Year
  Sex: Male
  Weight: 107.05 kg

DRUGS (4)
  1. STELARA [Suspect]
     Active Substance: USTEKINUMAB
     Indication: CROHN^S DISEASE
     Route: 042
     Dates: start: 20180808
  2. PREDNISONE. [Concomitant]
     Active Substance: PREDNISONE
     Indication: CROHN^S DISEASE
     Dosage: INITIATED ON 29?MAY (YEAR UNSPECIFIED)
     Route: 048
  3. STELARA [Suspect]
     Active Substance: USTEKINUMAB
     Indication: CROHN^S DISEASE
     Route: 042
     Dates: start: 20180620
  4. PREDNISONE. [Concomitant]
     Active Substance: PREDNISONE
     Indication: CROHN^S DISEASE
     Route: 048

REACTIONS (9)
  - Rash papular [Recovering/Resolving]
  - Back pain [Unknown]
  - Nausea [Unknown]
  - Flatulence [Unknown]
  - Abdominal distension [Unknown]
  - Decreased appetite [Unknown]
  - Night sweats [Unknown]
  - Dizziness [Unknown]
  - Fatigue [Unknown]

NARRATIVE: CASE EVENT DATE: 201806
